FAERS Safety Report 11191171 (Version 2)
Quarter: 2015Q2

REPORT INFORMATION
  Report Type: Spontaneous
  Country: US (occurrence: US)
  Receive Date: 20150615
  Receipt Date: 20150625
  Transmission Date: 20150821
  Serious: Yes (Death)
  Sender: FDA-Public Use
  Company Number: GXBR2015US001518

PATIENT
  Age: 58 Year
  Sex: Female
  Weight: 89.8 kg

DRUGS (4)
  1. VITAMIN B12 [Suspect]
     Active Substance: CYANOCOBALAMIN
     Indication: FATIGUE
     Dosage: 1000 UG, ONCE/SINGLE
     Route: 030
  2. LIDOCAINE. [Suspect]
     Active Substance: LIDOCAINE
     Indication: MEDICATION DILUTION
     Dosage: 1 %, ONCE/SINGLE
     Route: 030
     Dates: start: 20150602
  3. DEPO-MEDROL [Suspect]
     Active Substance: METHYLPREDNISOLONE ACETATE
     Indication: SINUSITIS
     Dosage: 100 MG, ONCE/SINGLE
     Route: 030
     Dates: start: 20150602
  4. CEFTRIAXONE. [Suspect]
     Active Substance: CEFTRIAXONE
     Indication: SINUSITIS
     Dosage: 1 G, ONCE/SINGLE
     Route: 030
     Dates: start: 20150602

REACTIONS (8)
  - Rash generalised [Fatal]
  - Visual impairment [Fatal]
  - Loss of consciousness [Fatal]
  - Cardiac arrest [Fatal]
  - Pharyngeal oedema [Fatal]
  - Anaphylactic shock [Fatal]
  - Pruritus [Fatal]
  - Unresponsive to stimuli [Fatal]

NARRATIVE: CASE EVENT DATE: 20150602
